FAERS Safety Report 8843098 (Version 5)
Quarter: 2016Q1

REPORT INFORMATION
  Report Type: Report from Study
  Country: GB (occurrence: GB)
  Receive Date: 20121016
  Receipt Date: 20160217
  Transmission Date: 20160526
  Serious: Yes (Death, Other)
  Sender: FDA-Public Use
  Company Number: GB-ROCHE-1142411

PATIENT
  Age: 66 Year
  Sex: Male
  Weight: 76 kg

DRUGS (2)
  1. RITUXIMAB [Suspect]
     Active Substance: RITUXIMAB
     Indication: RHEUMATOID ARTHRITIS
     Dosage: DATE OF LAST DOSE PRIOR TO SAE: 08/AUG/2012
     Route: 042
     Dates: start: 20090429
  2. PREDNISOLONE. [Concomitant]
     Active Substance: PREDNISOLONE

REACTIONS (6)
  - Oesophageal carcinoma [Fatal]
  - Lip squamous cell carcinoma [Recovered/Resolved]
  - Lip and/or oral cavity cancer stage 0 [Unknown]
  - Oesophageal squamous cell carcinoma [Fatal]
  - Lip neoplasm malignant stage unspecified [Unknown]
  - Pharyngeal cancer [Unknown]

NARRATIVE: CASE EVENT DATE: 20111116
